FAERS Safety Report 7425685-7 (Version None)
Quarter: 2011Q2

REPORT INFORMATION
  Report Type: 
  Country: None (occurrence: None)
  Receive Date: 20110419
  Receipt Date: 20110413
  Transmission Date: 20111010
  Serious: No
  Sender: FDA-Public Use
  Company Number: DL2011-0281

PATIENT
  Age: 23 Year
  Sex: Female

DRUGS (3)
  1. MIFEPRISTONE (MIFEPREX) [Suspect]
     Indication: ABORTION INDUCED
     Dosage: 200 MG, ORAL
     Route: 048
     Dates: start: 20110211
  2. MISOPROSTOL [Suspect]
     Dosage: 800 MCG, BUCCAL
     Route: 002
     Dates: start: 20110212
  3. DOXYCYCLINE [Concomitant]

REACTIONS (3)
  - DIZZINESS [None]
  - SYNCOPE [None]
  - VAGINAL HAEMORRHAGE [None]
